FAERS Safety Report 15806076 (Version 4)
Quarter: 2019Q3

REPORT INFORMATION
  Report Type: Report from Study
  Country: CA (occurrence: CA)
  Receive Date: 20190110
  Receipt Date: 20190812
  Transmission Date: 20191004
  Serious: Yes (Hospitalization, Other)
  Sender: FDA-Public Use
  Company Number: CA-BAYER-2019-002965

PATIENT
  Age: 83 Year
  Sex: Female

DRUGS (1)
  1. ADEMPAS [Suspect]
     Active Substance: RIOCIGUAT
     Indication: PULMONARY HYPERTENSION
     Dosage: 0.5 MG, TID
     Route: 048
     Dates: start: 20180416

REACTIONS (12)
  - Abdominal discomfort [Not Recovered/Not Resolved]
  - Pneumonia [None]
  - Cerebrovascular accident [Recovering/Resolving]
  - Hyperglycaemia [Unknown]
  - Cough [Not Recovered/Not Resolved]
  - Hip fracture [None]
  - Productive cough [Not Recovered/Not Resolved]
  - Fall [Unknown]
  - Product dose omission [None]
  - Hospitalisation [Not Recovered/Not Resolved]
  - Rehabilitation therapy [Not Recovered/Not Resolved]
  - Oxygen saturation decreased [None]

NARRATIVE: CASE EVENT DATE: 201812
